FAERS Safety Report 25519917 (Version 1)
Quarter: 2025Q3

REPORT INFORMATION
  Report Type: Spontaneous
  Country: US (occurrence: US)
  Receive Date: 20250704
  Receipt Date: 20250704
  Transmission Date: 20251020
  Serious: Yes (Hospitalization)
  Sender: IPSEN BIOPHARMACEUTICALS, INC.
  Company Number: US-IPSEN Group, Research and Development-2025-11284

PATIENT
  Age: 15 Year
  Sex: Male
  Weight: 49 kg

DRUGS (4)
  1. INCRELEX [Suspect]
     Active Substance: MECASERMIN
     Indication: Primary insulin like growth factor-1 deficiency
     Dosage: 4 MILLIGRAM, BID
     Dates: start: 20241226, end: 20250505
  2. INCRELEX [Suspect]
     Active Substance: MECASERMIN
     Dosage: 3 MILLIGRAM, BID
     Dates: start: 20250508
  3. FLUOXETINE [Concomitant]
     Active Substance: FLUOXETINE HYDROCHLORIDE
     Indication: Product used for unknown indication
  4. ANASTROZOLE [Concomitant]
     Active Substance: ANASTROZOLE
     Indication: Product used for unknown indication

REACTIONS (2)
  - CSF volume increased [Unknown]
  - Headache [Unknown]

NARRATIVE: CASE EVENT DATE: 20250505
